FAERS Safety Report 12687123 (Version 2)
Quarter: 2016Q3

REPORT INFORMATION
  Report Type: Spontaneous
  Country: US (occurrence: US)
  Receive Date: 20160825
  Receipt Date: 20160912
  Transmission Date: 20161109
  Serious: Yes (Other)
  Sender: FDA-Public Use
  Company Number: US-BAYER-2016-164999

PATIENT
  Sex: Female

DRUGS (5)
  1. VIBRAMYCIN [Concomitant]
     Active Substance: DOXYCYCLINE
     Dosage: 100 MG, UNK
     Route: 048
  2. MIRENA [Suspect]
     Active Substance: LEVONORGESTREL
     Indication: CONTRACEPTION
     Dosage: UNK
     Dates: start: 20160707, end: 20160713
  3. NORMODYNE [Concomitant]
     Active Substance: LABETALOL HYDROCHLORIDE
     Dosage: 200 MG, BID
     Route: 048
  4. VITAMIN C [Concomitant]
     Active Substance: ASCORBIC ACID
     Dosage: 500 MG, QD
     Route: 048
  5. NICOTINE. [Concomitant]
     Active Substance: NICOTINE
     Dosage: 14 MCG/24HR, CONT
     Route: 062

REACTIONS (2)
  - Retained products of conception [Recovered/Resolved]
  - Postpartum haemorrhage [None]

NARRATIVE: CASE EVENT DATE: 20160713
